FAERS Safety Report 10750104 (Version 1)
Quarter: 2015Q1

REPORT INFORMATION
  Report Type: Spontaneous
  Country: BR (occurrence: BR)
  Receive Date: 20150129
  Receipt Date: 20150129
  Transmission Date: 20150721
  Serious: Yes (Hospitalization, Other)
  Sender: FDA-Public Use
  Company Number: BR-BRISTOL-MYERS SQUIBB COMPANY-BMS-2015-002345

PATIENT
  Sex: Female

DRUGS (1)
  1. SPRYCEL [Suspect]
     Active Substance: DASATINIB
     Indication: LEUKAEMIA
     Dosage: 100 MG, UNK
     Route: 048

REACTIONS (3)
  - Unintended pregnancy [Recovered/Resolved]
  - Pleural effusion [Unknown]
  - Abortion spontaneous [Unknown]

NARRATIVE: CASE EVENT DATE: 2014
